FAERS Safety Report 4619216-4 (Version None)
Quarter: 2005Q2

REPORT INFORMATION
  Report Type: 
  Country: None (occurrence: None)
  Receive Date: 20050321
  Receipt Date: 20040914
  Transmission Date: 20051028
  Serious: Yes (Disabling)
  Sender: FDA-Public Use
  Company Number: 2004-09-0878

PATIENT
  Age: 48 Year
  Sex: Female
  Weight: 63.5036 kg

DRUGS (11)
  1. PEG-INTRON [Suspect]
     Indication: HEPATITIS C
     Dosage: SUBCUTANEOUS
     Route: 058
     Dates: start: 20011001, end: 20011201
  2. PEG-INTRON [Suspect]
     Indication: HEPATITIS C
     Dosage: SUBCUTANEOUS
     Route: 058
     Dates: start: 20021001, end: 20021201
  3. REBETOL [Suspect]
     Indication: HEPATITIS C
     Dosage: ORAL
     Route: 048
     Dates: start: 20011001, end: 20011201
  4. REBETOL [Suspect]
     Indication: HEPATITIS C
     Dosage: ORAL
     Route: 048
     Dates: start: 20021001, end: 20021201
  5. XANAX [Concomitant]
  6. PREVACID [Concomitant]
  7. PROZAC [Concomitant]
  8. MULTI-VITAMINS [Concomitant]
  9. CALCIUM GLUCONATE [Concomitant]
  10. NEXIUM [Concomitant]
  11. AMBIEN [Concomitant]

REACTIONS (9)
  - AGEUSIA [None]
  - ANOSMIA [None]
  - COUGH [None]
  - DYSPHONIA [None]
  - GASTROOESOPHAGEAL REFLUX DISEASE [None]
  - NASAL CONGESTION [None]
  - POSTNASAL DRIP [None]
  - RHINITIS [None]
  - SINUSITIS [None]
